FAERS Safety Report 17236279 (Version 1)
Quarter: 2020Q1

REPORT INFORMATION
  Report Type: Spontaneous
  Country: FR (occurrence: FR)
  Receive Date: 20200106
  Receipt Date: 20200106
  Transmission Date: 20200409
  Serious: Yes (Death)
  Sender: FDA-Public Use
  Company Number: FR-TEVA-2019-FR-1161786

PATIENT
  Age: 78 Year
  Sex: Female

DRUGS (4)
  1. RABEPRAZOLE BASE [Suspect]
     Active Substance: RABEPRAZOLE
     Indication: HIATUS HERNIA
     Dosage: 20 MG 1 DAYS
     Route: 048
  2. LEDERFOLINE 25 MG, COMPRIM? [Suspect]
     Active Substance: LEUCOVORIN CALCIUM
     Indication: VITAMIN SUPPLEMENTATION
     Dosage: UNKNOWN
     Route: 048
  3. PERINDOPRIL [Suspect]
     Active Substance: PERINDOPRIL
     Indication: HYPERTENSION
     Dosage: 2 MG 1 DAYS
     Route: 048
  4. VENCLYXTO [Suspect]
     Active Substance: VENETOCLAX
     Indication: CHRONIC LYMPHOCYTIC LEUKAEMIA
     Dosage: 1 DOSAGE FORMS 1 DAYS
     Route: 048
     Dates: start: 20181121

REACTIONS (1)
  - Richter^s syndrome [Fatal]

NARRATIVE: CASE EVENT DATE: 201911
